FAERS Safety Report 11883718 (Version 1)
Quarter: 2016Q1

REPORT INFORMATION
  Report Type: Spontaneous
  Country: US (occurrence: US)
  Receive Date: 20160101
  Receipt Date: 20160101
  Transmission Date: 20160526
  Serious: No
  Sender: FDA-Public Use
  Company Number: US-AMGEN-USASP2015139205

PATIENT
  Age: 72 Year
  Sex: Female
  Weight: 97.51 kg

DRUGS (1)
  1. ENBREL [Suspect]
     Active Substance: ETANERCEPT
     Indication: PSORIATIC ARTHROPATHY
     Dosage: 50 MG, QWK
     Route: 058
     Dates: start: 2015

REACTIONS (2)
  - Injection site haemorrhage [Unknown]
  - Injection site bruising [Unknown]

NARRATIVE: CASE EVENT DATE: 2015
